FAERS Safety Report 13413201 (Version 1)
Quarter: 2017Q2

REPORT INFORMATION
  Report Type: Spontaneous
  Country: US (occurrence: US)
  Receive Date: 20170407
  Receipt Date: 20170407
  Transmission Date: 20170830
  Serious: No
  Sender: FDA-Public Use
  Company Number: US-BAYER-2017-067004

PATIENT
  Age: 86 Year
  Sex: Female
  Weight: 61 kg

DRUGS (2)
  1. SENOKOT [Concomitant]
     Active Substance: SENNOSIDES
  2. MIRALAX [Suspect]
     Active Substance: POLYETHYLENE GLYCOL 3350
     Indication: CONSTIPATION
     Route: 048
     Dates: end: 2017

REACTIONS (2)
  - Product use in unapproved indication [Unknown]
  - Dysphagia [Recovered/Resolved]

NARRATIVE: CASE EVENT DATE: 2017
